FAERS Safety Report 6348608-0 (Version None)
Quarter: 2009Q3

REPORT INFORMATION
  Report Type: 
  Country: None (occurrence: None)
  Receive Date: 20090911
  Receipt Date: 20090902
  Transmission Date: 20100115
  Serious: Yes (Hospitalization)
  Sender: FDA-Public Use
  Company Number: BR-ROCHE-652918

PATIENT
  Sex: Female
  Weight: 50 kg

DRUGS (6)
  1. RIVOTRIL [Suspect]
     Indication: SLEEP DISORDER THERAPY
     Dosage: FREQUENCY: 2 TABLETS OF 0.5 MG AT NIGHT (BEFORE SLEEP).
     Route: 048
     Dates: start: 20080101
  2. PANTOPRAZOLE SODIUM [Concomitant]
     Indication: GASTRIC DISORDER
     Dosage: FREQUENCY: 1 DOSE FORM FASTING.
     Route: 048
  3. DIOVAN HCT [Concomitant]
     Dosage: FREQUENCY: 2 TABELTS A DAY (AT 9:00 AND AT 21:00).
     Route: 048
  4. CEBRALAT [Concomitant]
     Dosage: FREQUENCY: 2 TABLETS A DAY.
     Route: 048
  5. BENERVA [Concomitant]
     Indication: VITAMIN SUPPLEMENTATION
     Dosage: FREQUENCY: 1 TABLET AT LUNCH.
     Route: 048
  6. PURAN T4 [Concomitant]
     Indication: THYROID DISORDER
     Dosage: START DATE: SINCE LONG TIME AGO.

REACTIONS (9)
  - CONFUSIONAL STATE [None]
  - DEPRESSED MOOD [None]
  - DEPRESSIVE SYMPTOM [None]
  - HYPERTENSION [None]
  - IMPAIRED SELF-CARE [None]
  - PAIN [None]
  - THINKING ABNORMAL [None]
  - THROMBOSIS [None]
  - TREATMENT NONCOMPLIANCE [None]
